FAERS Safety Report 6672706-5 (Version None)
Quarter: 2010Q2

REPORT INFORMATION
  Report Type: 
  Country: None (occurrence: None)
  Receive Date: 20100408
  Receipt Date: 20100330
  Transmission Date: 20101027
  Serious: Yes (Other)
  Sender: FDA-Public Use
  Company Number: CA-JNJFOC-20100400503

PATIENT
  Sex: Female
  Weight: 83 kg

DRUGS (3)
  1. REMICADE [Suspect]
     Indication: RHEUMATOID ARTHRITIS
     Route: 042
  2. TYLENOL-500 [Concomitant]
  3. AERIUS [Concomitant]

REACTIONS (5)
  - COUGH [None]
  - DIZZINESS [None]
  - PLEURITIC PAIN [None]
  - URINE ODOUR ABNORMAL [None]
  - VISUAL ACUITY REDUCED [None]
